FAERS Safety Report 16968862 (Version 2)
Quarter: 2020Q1

REPORT INFORMATION
  Report Type: Report from Study
  Country: US (occurrence: US)
  Receive Date: 20191029
  Receipt Date: 20200323
  Transmission Date: 20200409
  Serious: No
  Sender: FDA-Public Use
  Company Number: US-AMGEN-USASP2019173167

PATIENT
  Age: 86 Year
  Sex: Female

DRUGS (2)
  1. REPATHA [Suspect]
     Active Substance: EVOLOCUMAB
     Indication: CARDIAC DISORDER
     Dosage: 140 MILLIGRAM
     Route: 065
     Dates: start: 2019
  2. REPATHA [Suspect]
     Active Substance: EVOLOCUMAB
     Indication: BLOOD CHOLESTEROL INCREASED
     Dosage: UNK
     Route: 065

REACTIONS (3)
  - Wrong technique in product usage process [Unknown]
  - Accidental exposure to product [Unknown]
  - Device issue [Unknown]

NARRATIVE: CASE EVENT DATE: 20191015
